FAERS Safety Report 23487206 (Version 1)
Quarter: 2024Q1

REPORT INFORMATION
  Report Type: Spontaneous
  Country: US (occurrence: None)
  Receive Date: 20240206
  Receipt Date: 20240206
  Transmission Date: 20240410
  Serious: No
  Sender: FDA-Public Use
  Company Number: US-USAntibiotics-000248

PATIENT
  Age: 67 Year
  Sex: Female

DRUGS (1)
  1. AMOXIL [Suspect]
     Active Substance: AMOXICILLIN
     Indication: Product used for unknown indication

REACTIONS (1)
  - Drug hypersensitivity [Unknown]
